FAERS Safety Report 26060350 (Version 1)
Quarter: 2025Q4

REPORT INFORMATION
  Report Type: Spontaneous
  Country: US (occurrence: US)
  Receive Date: 20251118
  Receipt Date: 20251118
  Transmission Date: 20260118
  Serious: No
  Sender: SANOFI AVENTIS
  Company Number: US-SA-2025SA333767

PATIENT
  Sex: Male

DRUGS (1)
  1. FITUSIRAN [Suspect]
     Active Substance: FITUSIRAN
     Indication: Haemophilia
     Dosage: 40 MG, Q2M
     Route: 058
     Dates: start: 202510

REACTIONS (1)
  - Incorrect dose administered [Unknown]

NARRATIVE: CASE EVENT DATE: 20251001
